FAERS Safety Report 5157144-9 (Version None)
Quarter: 2006Q4

REPORT INFORMATION
  Report Type: 
  Country: None (occurrence: None)
  Receive Date: 20061127
  Receipt Date: 20061004
  Transmission Date: 20070319
  Serious: Yes (Other)
  Sender: FDA-Public Use
  Company Number: PHEH2006US12508

PATIENT
  Age: 43 Year
  Sex: Female
  Weight: 52.154 kg

DRUGS (5)
  1. ZELNORM [Suspect]
     Indication: IRRITABLE BOWEL SYNDROME
     Dosage: 6 MG, QD
     Route: 048
     Dates: start: 20060815, end: 20061002
  2. LEVOXYL [Concomitant]
     Indication: HYPOTHYROIDISM
     Dosage: UNK, UNK
  3. ESTRADIOL INJ [Concomitant]
     Dosage: 0.05 UNK, UNK
     Route: 062
  4. CALCIUM [Concomitant]
     Dosage: 1500 MG, UNK
     Route: 048
  5. XANAX - SLOW RELEASE [Concomitant]
     Indication: ANXIETY
     Dosage: 1 MG, UNK

REACTIONS (13)
  - ANOREXIA [None]
  - ASTHENIA [None]
  - BLOOD CHLORIDE DECREASED [None]
  - BLOOD POTASSIUM DECREASED [None]
  - BLOOD URINE PRESENT [None]
  - DIARRHOEA [None]
  - DYSGEUSIA [None]
  - FEELING ABNORMAL [None]
  - HYPONATRAEMIA [None]
  - NAUSEA [None]
  - RED BLOOD CELL COUNT DECREASED [None]
  - TREMOR [None]
  - WEIGHT DECREASED [None]
